FAERS Safety Report 8268450-3 (Version None)
Quarter: 2012Q2

REPORT INFORMATION
  Report Type: 
  Country: None (occurrence: None)
  Receive Date: 20120409
  Receipt Date: 20120402
  Transmission Date: 20120825
  Serious: Yes (Other)
  Sender: FDA-Public Use
  Company Number: US-ABBOTT-12P-163-0920876-00

PATIENT
  Sex: Female

DRUGS (1)
  1. HUMIRA [Suspect]
     Indication: CROHN'S DISEASE

REACTIONS (5)
  - GASTROINTESTINAL FISTULA [None]
  - ABDOMINAL ABSCESS [None]
  - MEDICAL DEVICE COMPLICATION [None]
  - HERNIA [None]
  - OVARIAN CYST [None]
